FAERS Safety Report 6197726-9 (Version None)
Quarter: 2009Q2

REPORT INFORMATION
  Report Type: 
  Country: None (occurrence: None)
  Receive Date: 20090521
  Receipt Date: 20090518
  Transmission Date: 20091009
  Serious: Yes (Death, Hospitalization)
  Sender: FDA-Public Use
  Company Number: US-ROXANE LABORATORIES, INC.-2009-RO-00509RO

PATIENT
  Age: 90 Year
  Sex: Female

DRUGS (5)
  1. DIGOXIN [Suspect]
     Indication: ATRIAL FIBRILLATION
     Route: 042
  2. DIGOXIN [Suspect]
     Route: 042
  3. DIGOXIN [Suspect]
     Route: 042
  4. ANTIBIOTICS [Concomitant]
     Indication: SYSTEMIC INFLAMMATORY RESPONSE SYNDROME
  5. HYDRATION [Concomitant]
     Indication: SYSTEMIC INFLAMMATORY RESPONSE SYNDROME
     Route: 042

REACTIONS (7)
  - ATRIOVENTRICULAR BLOCK FIRST DEGREE [None]
  - DEATH [None]
  - DRUG INEFFECTIVE [None]
  - INFECTION [None]
  - MULTI-ORGAN FAILURE [None]
  - THERAPEUTIC AGENT TOXICITY [None]
  - VENTRICULAR TACHYCARDIA [None]
